FAERS Safety Report 4907365-2 (Version None)
Quarter: 2006Q1

REPORT INFORMATION
  Report Type: 
  Country: None (occurrence: None)
  Receive Date: 20060208
  Receipt Date: 20060208
  Transmission Date: 20060701
  Serious: No
  Sender: FDA-Public Use
  Company Number: None

PATIENT
  Age: 42 Year
  Sex: Female
  Weight: 113.3993 kg

DRUGS (1)
  1. FLUOXETINE [Suspect]
     Dosage: SEE IMAGE

REACTIONS (6)
  - ANXIETY [None]
  - HALLUCINATION, AUDITORY [None]
  - IRRITABILITY [None]
  - PHARMACEUTICAL PRODUCT COMPLAINT [None]
  - PREMENSTRUAL SYNDROME [None]
  - SLEEP DISORDER [None]
